FAERS Safety Report 8779605 (Version 2)
Quarter: 2012Q4

REPORT INFORMATION
  Report Type: 
  Country: US (occurrence: US)
  Receive Date: 20120911
  Receipt Date: 20121112
  Transmission Date: 20130627
  Serious: Yes (Death)
  Sender: FDA-Public Use
  Company Number: US-AMGEN-USASP2012056440

PATIENT
  Age: 72 Year
  Sex: Female

DRUGS (20)
  1. PROCRIT [Suspect]
     Indication: RENAL FAILURE CHRONIC
     Dosage: UNK
     Dates: end: 201112
  2. CARISOPRODOL [Concomitant]
     Dosage: 350 mg, upto 3 times a day as needed
  3. CRESTOR [Concomitant]
     Dosage: 40 mg, qd
  4. POTASSIUM [Concomitant]
     Dosage: 10 mEq 3 tablets twice daily
  5. ASPIRIN [Concomitant]
     Dosage: 325 mg, qd
  6. GLYBURIDE [Concomitant]
     Dosage: 5 mg, 2 in morning and 2 in evening
  7. LISINOPRIL [Concomitant]
     Dosage: 40 mg, qd
  8. METOPROLOL [Concomitant]
     Dosage: 100 mg, bid
  9. AMITRIPTYLINE [Concomitant]
     Dosage: 50 mg, at bedtime
  10. PERPHENAZINE [Concomitant]
     Dosage: 8 mg, at bedtime
  11. PLAVIX [Concomitant]
     Dosage: 75 mg, qd
  12. AMLODIPINE [Concomitant]
     Dosage: 10 mg, each morning
  13. METHYLDOPA [Concomitant]
     Dosage: 500 mg, bid
  14. ANTIVERT                           /00007101/ [Concomitant]
     Dosage: UNK UNK, prn, as needed
  15. VITAMIN D /00107901/ [Concomitant]
     Dosage: 4000 unit, qd
  16. IRON [Concomitant]
     Dosage: 325 mg, 1 or 2 daily
  17. SODIUM BICARBONATE [Concomitant]
     Dosage: 650 mg, bid
  18. HYDROCODONE [Concomitant]
     Dosage: 5/325 mg, bid
  19. DULCOLAX                           /00064401/ [Concomitant]
     Dosage: 2 daily as needed
  20. MIRALAX                            /00754501/ [Concomitant]
     Dosage: 17 grams in 8 ounces of water or coffee daily as needed
     Dates: start: 20120531

REACTIONS (1)
  - Acute myocardial infarction [Fatal]
